FAERS Safety Report 23442972 (Version 1)
Quarter: 2024Q1

REPORT INFORMATION
  Report Type: Spontaneous
  Country: US (occurrence: None)
  Receive Date: 20240124
  Receipt Date: 20240124
  Transmission Date: 20240410
  Serious: Yes (Disabling, Other)
  Sender: FDA-Public Use
  Company Number: None

PATIENT
  Age: 66 Year
  Sex: Female
  Weight: 69.75 kg

DRUGS (1)
  1. LEVOFLOXACIN [Suspect]
     Active Substance: LEVOFLOXACIN
     Dates: start: 20231129, end: 20231205

REACTIONS (6)
  - Tendonitis [None]
  - Coeliac disease [None]
  - Gait inability [None]
  - Dermatitis herpetiformis [None]
  - Rash [None]
  - Product prescribing issue [None]

NARRATIVE: CASE EVENT DATE: 20231201
